FAERS Safety Report 10178593 (Version 1)
Quarter: 2014Q2

REPORT INFORMATION
  Report Type: Spontaneous
  Country: US (occurrence: None)
  Receive Date: 20140516
  Receipt Date: 20140516
  Transmission Date: 20141212
  Serious: Yes (Other)
  Sender: FDA-Public Use
  Company Number: None

PATIENT
  Age: 49 Year
  Sex: Female
  Weight: 72.58 kg

DRUGS (1)
  1. TRIAMT/HCTZ [Suspect]
     Indication: EAR DISORDER
     Dosage: 1 HALF TO 1 TABLET DAILY ?ONCE DAILY?TAKEN BY MOUTH
     Route: 048

REACTIONS (7)
  - Dehydration [None]
  - Muscle spasms [None]
  - Eye pain [None]
  - Extra dose administered [None]
  - Eye movement disorder [None]
  - Diplopia [None]
  - Emotional disorder [None]
